FAERS Safety Report 7590833-5 (Version None)
Quarter: 2011Q3

REPORT INFORMATION
  Report Type: 
  Country: None (occurrence: None)
  Receive Date: 20110705
  Receipt Date: 20110622
  Transmission Date: 20111222
  Serious: Yes (Hospitalization, Other)
  Sender: FDA-Public Use
  Company Number: PHHY2011US30484

PATIENT
  Sex: Female
  Weight: 13.1 kg

DRUGS (5)
  1. IBN [Concomitant]
  2. EXJADE [Suspect]
     Indication: APLASIA PURE RED CELL
     Dosage: 250 MG, BID
     Route: 048
     Dates: start: 20110328, end: 20110404
  3. EXJADE [Suspect]
     Indication: IRON OVERLOAD
  4. ZOFRON [Concomitant]
  5. BENADRYL [Concomitant]

REACTIONS (2)
  - DECREASED IMMUNE RESPONSIVENESS [None]
  - LIVER FUNCTION TEST ABNORMAL [None]
